FAERS Safety Report 8254674-8 (Version None)
Quarter: 2012Q2

REPORT INFORMATION
  Report Type: 
  Country: None (occurrence: None)
  Receive Date: 20120403
  Receipt Date: 20120323
  Transmission Date: 20120825
  Serious: Yes (Hospitalization)
  Sender: FDA-Public Use
  Company Number: JP-ELI_LILLY_AND_COMPANY-JP201201009524

PATIENT
  Age: 80 Year
  Sex: Female

DRUGS (2)
  1. FORTEO [Suspect]
     Dosage: 20 UG, QD
     Route: 058
     Dates: start: 20110414, end: 20120128
  2. ONEALFA [Concomitant]
     Dosage: UNK
     Dates: start: 20111008

REACTIONS (2)
  - RENAL FUNCTION TEST ABNORMAL [None]
  - OEDEMA PERIPHERAL [None]
